FAERS Safety Report 5786175-0 (Version None)
Quarter: 2008Q2

REPORT INFORMATION
  Report Type: 
  Country: None (occurrence: None)
  Receive Date: 20080624
  Receipt Date: 20080616
  Transmission Date: 20081010
  Serious: Yes (Other)
  Sender: FDA-Public Use
  Company Number: B0360913A

PATIENT
  Age: 37 Year
  Sex: Female

DRUGS (9)
  1. PAROXETINE HCL [Suspect]
     Route: 065
     Dates: start: 19990127, end: 20031001
  2. DIAZEPAM [Concomitant]
     Route: 065
     Dates: start: 20020812
  3. PROZAC [Concomitant]
     Route: 065
     Dates: start: 19940110
  4. LEVOTHYROXINE SODIUM [Concomitant]
     Dates: start: 19981001
  5. TAMOXIFEN CITRATE [Concomitant]
     Dates: start: 19990701, end: 20050301
  6. ALVERINE CITRATE [Concomitant]
     Indication: IRRITABLE BOWEL SYNDROME
     Dates: start: 20021001
  7. CITALOPRAM HYDROBROMIDE [Concomitant]
     Dates: start: 20031001
  8. DANAZOL [Concomitant]
     Dates: start: 20050101, end: 20060101
  9. DESOGESTREL [Concomitant]
     Dates: start: 20030901

REACTIONS (19)
  - ABNORMAL DREAMS [None]
  - ACROPHOBIA [None]
  - CRYING [None]
  - DECREASED APPETITE [None]
  - DEPRESSED MOOD [None]
  - DEPRESSION [None]
  - DIZZINESS [None]
  - DRUG DEPENDENCE [None]
  - HEADACHE [None]
  - INSOMNIA [None]
  - IRRITABILITY [None]
  - NAUSEA [None]
  - NIGHT SWEATS [None]
  - NIGHTMARE [None]
  - PANIC ATTACK [None]
  - PSYCHOTIC BEHAVIOUR [None]
  - SLEEP DISORDER [None]
  - TREMOR [None]
  - WITHDRAWAL SYNDROME [None]
